FAERS Safety Report 8844614 (Version 1)
Quarter: 2012Q4

REPORT INFORMATION
  Report Type: 
  Country: US (occurrence: US)
  Receive Date: 20121017
  Receipt Date: 20121017
  Transmission Date: 20130627
  Serious: No
  Sender: FDA-Public Use
  Company Number: US-PFIZER INC-2012257692

PATIENT
  Age: 56 Year
  Sex: Female
  Weight: 72.56 kg

DRUGS (2)
  1. LIPITOR [Suspect]
     Indication: BLOOD CHOLESTEROL INCREASED
     Dosage: 40 mg, daily
  2. DIOVAN [Concomitant]
     Indication: HYPERTENSION
     Dosage: 12.5 mg, daily

REACTIONS (2)
  - Drug ineffective [Unknown]
  - Arthralgia [Recovered/Resolved]
